FAERS Safety Report 24661467 (Version 2)
Quarter: 2024Q4

REPORT INFORMATION
  Report Type: Spontaneous
  Country: US (occurrence: US)
  Receive Date: 20241125
  Receipt Date: 20241219
  Transmission Date: 20250115
  Serious: No
  Sender: IPSEN BIOPHARMACEUTICALS, INC.
  Company Number: US-IPSEN Group, Research and Development-2024-23227

PATIENT
  Sex: Female
  Weight: 91 kg

DRUGS (2)
  1. SOMATULINE DEPOT [Suspect]
     Active Substance: LANREOTIDE ACETATE
     Indication: Melanosis
     Dosage: 120MG/0.5ML
     Route: 058
  2. SOMATULINE DEPOT [Suspect]
     Active Substance: LANREOTIDE ACETATE
     Indication: Off label use

REACTIONS (6)
  - Lethargy [Unknown]
  - Malaise [Unknown]
  - Wrong technique in product usage process [Unknown]
  - Off label use [Unknown]
  - Off label use [Unknown]
  - Product administered at inappropriate site [Unknown]
